FAERS Safety Report 6842325-6 (Version None)
Quarter: 2010Q3

REPORT INFORMATION
  Report Type: 
  Country: None (occurrence: None)
  Receive Date: 20100714
  Receipt Date: 20070723
  Transmission Date: 20110219
  Serious: No
  Sender: FDA-Public Use
  Company Number: US-PFIZER INC-2007062527

PATIENT
  Sex: Female
  Weight: 52.2 kg

DRUGS (6)
  1. CHANTIX [Suspect]
     Indication: SMOKING CESSATION THERAPY
     Dates: start: 20070716
  2. LEXAPRO [Concomitant]
  3. CELEXA [Concomitant]
  4. TRAZODONE HYDROCHLORIDE [Concomitant]
  5. ADDERALL 10 [Concomitant]
  6. LAMICTAL [Concomitant]

REACTIONS (2)
  - CONSTIPATION [None]
  - NAUSEA [None]
